FAERS Safety Report 8027674-0 (Version None)
Quarter: 2012Q1

REPORT INFORMATION
  Report Type: 
  Country: None (occurrence: None)
  Receive Date: 20120105
  Receipt Date: 20120105
  Transmission Date: 20120608
  Serious: Yes (Hospitalization)
  Sender: FDA-Public Use
  Company Number: None

PATIENT
  Age: 65 Year
  Sex: Male
  Weight: 70 kg

DRUGS (2)
  1. BUMETANIDE [Suspect]
     Indication: CARDIAC FAILURE CHRONIC
     Dosage: 2 MG BID PO
     Route: 048
     Dates: end: 20111230
  2. METOLAZONE [Suspect]
     Indication: CARDIAC FAILURE CHRONIC
     Dosage: 2.5 MG OTHER PO
     Route: 048
     Dates: start: 20111110, end: 20111230

REACTIONS (1)
  - RENAL FAILURE ACUTE [None]
